FAERS Safety Report 20548595 (Version 1)
Quarter: 2022Q1

REPORT INFORMATION
  Report Type: Spontaneous
  Country: US (occurrence: None)
  Receive Date: 20220303
  Receipt Date: 20220303
  Transmission Date: 20220423
  Serious: Yes (Hospitalization)
  Sender: FDA-Public Use
  Company Number: None

PATIENT
  Age: 73 Year
  Sex: Male
  Weight: 79.6 kg

DRUGS (5)
  1. MOLNUPIRAVIR [Suspect]
     Active Substance: MOLNUPIRAVIR
     Indication: COVID-19
     Dosage: FREQUENCY : TWICE A DAY;?
     Route: 048
     Dates: start: 20220201, end: 20220205
  2. CHOLECALCIFEROL [Concomitant]
     Active Substance: CHOLECALCIFEROL
     Dates: start: 20220119
  3. FLUTICASONE PROPIONATE\SALMETEROL XINAFOATE [Concomitant]
     Active Substance: FLUTICASONE PROPIONATE\SALMETEROL XINAFOATE
     Dates: start: 20210921
  4. ALBUTEROL [Concomitant]
     Active Substance: ALBUTEROL
     Dates: start: 20210921
  5. VITAMINS [Concomitant]
     Active Substance: VITAMINS
     Dates: start: 20210301

REACTIONS (9)
  - Dyspnoea [None]
  - Myalgia [None]
  - Vomiting [None]
  - Palpitations [None]
  - Atrial fibrillation [None]
  - Hypotension [None]
  - Pancreatitis acute [None]
  - Acute kidney injury [None]
  - Liver injury [None]

NARRATIVE: CASE EVENT DATE: 20220206
